FAERS Safety Report 23916474 (Version 1)
Quarter: 2024Q2

REPORT INFORMATION
  Report Type: Spontaneous
  Country: US (occurrence: None)
  Receive Date: 20240528
  Receipt Date: 20240528
  Transmission Date: 20240715
  Serious: Yes (unspecified)
  Sender: FDA-Public Use
  Company Number: None

PATIENT
  Age: 85 Year
  Sex: Female
  Weight: 53.1 kg

DRUGS (1)
  1. CALCIUM CHLORIDE\DEXTROSE\MAGNESIUM CHLORIDE\SODIUM CHLORIDE\SODIUM LA [Suspect]
     Active Substance: CALCIUM CHLORIDE\DEXTROSE\DEXTROSE MONOHYDRATE\MAGNESIUM CHLORIDE\SODIUM CHLORIDE\SODIUM LACTATE
     Dosage: OTHER QUANTITY : 76 BAGS;?FREQUENCY : AT BEDTIME;?OTHER ROUTE : PERITONEAL DIALYSIS;?
     Route: 050

REACTIONS (2)
  - Manufacturing product storage issue [None]
  - Manufacturing product shipping issue [None]

NARRATIVE: CASE EVENT DATE: 20240525
